FAERS Safety Report 10925750 (Version 3)
Quarter: 2015Q2

REPORT INFORMATION
  Report Type: Report from Study
  Country: BE (occurrence: BE)
  Receive Date: 20150318
  Receipt Date: 20150429
  Transmission Date: 20150821
  Serious: Yes (Other)
  Sender: FDA-Public Use
  Company Number: GR-AMGEN-GRCNI2015024127

PATIENT
  Age: 79 Year
  Sex: Male

DRUGS (11)
  1. D VITAL                            /00318501/ [Concomitant]
  2. XGEVA [Suspect]
     Active Substance: DENOSUMAB
     Indication: METASTASES TO BONE
     Dosage: UNK UNK, Q4WK
     Route: 058
  3. DENOSUMAB [Suspect]
     Active Substance: DENOSUMAB
     Indication: PRODUCT USED FOR UNKNOWN INDICATION
     Dosage: UNK
     Route: 065
  4. TAXOTERE [Concomitant]
     Active Substance: DOCETAXEL
  5. PREDNISONE. [Concomitant]
     Active Substance: PREDNISONE
  6. VANTASSE [Concomitant]
  7. STEOVIT D3 [Concomitant]
     Dosage: 1000/800 MG, QD
  8. CASODEX [Concomitant]
     Active Substance: BICALUTAMIDE
     Dosage: UNK
     Dates: start: 200701
  9. DAFALGAN [Concomitant]
     Active Substance: ACETAMINOPHEN
  10. PREDNISOLONE. [Concomitant]
     Active Substance: PREDNISOLONE
  11. LATANOPROST APOTEX [Concomitant]
     Route: 047

REACTIONS (1)
  - Osteonecrosis of jaw [Not Recovered/Not Resolved]

NARRATIVE: CASE EVENT DATE: 20140703
